FAERS Safety Report 23057429 (Version 2)
Quarter: 2024Q3

REPORT INFORMATION
  Report Type: Report from Study
  Country: US (occurrence: US)
  Receive Date: 20231012
  Receipt Date: 20240726
  Transmission Date: 20241016
  Serious: No
  Sender: MERCK
  Company Number: US-009507513-2309USA007858

PATIENT
  Age: 58 Year
  Sex: Male

DRUGS (3)
  1. KEYTRUDA [Suspect]
     Active Substance: PEMBROLIZUMAB
     Indication: Renal cancer stage IV
     Dosage: EVERY 3 WEEKS.
     Route: 042
     Dates: start: 202209
  2. INLYTA [Suspect]
     Active Substance: AXITINIB
  3. ELIQUIS [Concomitant]
     Active Substance: APIXABAN

REACTIONS (4)
  - Glossitis [Unknown]
  - Rash [Unknown]
  - Adverse event [Unknown]
  - Product dose omission issue [Unknown]

NARRATIVE: CASE EVENT DATE: 20221001
